FAERS Safety Report 20821463 (Version 1)
Quarter: 2022Q2

REPORT INFORMATION
  Report Type: Spontaneous
  Country: US (occurrence: US)
  Receive Date: 20220512
  Receipt Date: 20220512
  Transmission Date: 20220721
  Serious: No
  Sender: FDA-Public Use
  Company Number: US-PFIZER INC-202200469636

PATIENT
  Age: 71 Year
  Sex: Female

DRUGS (2)
  1. XELJANZ [Suspect]
     Active Substance: TOFACITINIB CITRATE
     Indication: Dermatomyositis
     Dosage: 5 MG, 2X/DAY (TWICE DAILY XELJANZ: 5 MG PO (ORALLY))
     Route: 048
  2. XELJANZ [Suspect]
     Active Substance: TOFACITINIB CITRATE
     Indication: Systemic scleroderma

REACTIONS (2)
  - Off label use [Unknown]
  - Alopecia [Unknown]
